FAERS Safety Report 10248148 (Version 1)
Quarter: 2014Q2

REPORT INFORMATION
  Report Type: Spontaneous
  Country: RU (occurrence: RU)
  Receive Date: 20140619
  Receipt Date: 20140619
  Transmission Date: 20141212
  Serious: Yes (Other)
  Sender: FDA-Public Use
  Company Number: RU-009507513-1406RUS005917

PATIENT
  Age: 35 Year
  Sex: Female

DRUGS (1)
  1. CLARITINE [Suspect]
     Indication: SEASONAL ALLERGY
     Dosage: ONE TABLET, ONCE PER DAY
     Route: 048
     Dates: start: 2009, end: 2009

REACTIONS (2)
  - Abortion missed [Unknown]
  - Exposure during pregnancy [Recovered/Resolved]
